FAERS Safety Report 8013033-3 (Version None)
Quarter: 2011Q4

REPORT INFORMATION
  Report Type: 
  Country: None (occurrence: None)
  Receive Date: 20111229
  Receipt Date: 20111223
  Transmission Date: 20120403
  Serious: Yes (Disabling)
  Sender: FDA-Public Use
  Company Number: US-SANOFI-AVENTIS-2011SA084863

PATIENT
  Sex: Male

DRUGS (2)
  1. LANTUS [Suspect]
     Dosage: DOSE:50 UNIT(S)
     Route: 065
     Dates: start: 20090201
  2. LANTUS [Suspect]
     Dosage: DOSE:12 UNIT(S)
     Route: 065

REACTIONS (3)
  - SURGERY [None]
  - STAPHYLOCOCCAL INFECTION [None]
  - WEIGHT DECREASED [None]
